FAERS Safety Report 9935428 (Version 1)
Quarter: 2014Q1

REPORT INFORMATION
  Report Type: Spontaneous
  Country: US (occurrence: US)
  Receive Date: 20140228
  Receipt Date: 20140228
  Transmission Date: 20141002
  Serious: No
  Sender: FDA-Public Use
  Company Number: US-PFIZER INC-2014054867

PATIENT
  Age: 72 Year
  Sex: Male
  Weight: 76.19 kg

DRUGS (6)
  1. LYRICA [Suspect]
     Indication: RESTLESS LEGS SYNDROME
     Dosage: 150 MG TABLET, 1X/DAY IN THE EVENING AT 7:00 PM (150 MG DAILY)
     Route: 048
     Dates: start: 201402
  2. ATORVASTATIN [Concomitant]
     Indication: BLOOD DISORDER
     Dosage: UNK
  3. LISINOPRIL [Concomitant]
     Indication: HYPERTENSION
     Dosage: UNK
  4. MIRAPEX [Concomitant]
     Indication: RESTLESS LEGS SYNDROME
     Dosage: UNK
     Dates: start: 2004
  5. MIRAPEX [Concomitant]
     Dosage: 0.75 MG, UNK
  6. AMLODIPINE [Concomitant]
     Indication: HYPERTENSION
     Dosage: UNK

REACTIONS (3)
  - Therapeutic response unexpected [Unknown]
  - Somnolence [Unknown]
  - Dizziness [Unknown]
